FAERS Safety Report 10413139 (Version 1)
Quarter: 2014Q3

REPORT INFORMATION
  Report Type: Spontaneous
  Country: DE (occurrence: DE)
  Receive Date: 20140827
  Receipt Date: 20140827
  Transmission Date: 20150326
  Serious: Yes (Other)
  Sender: FDA-Public Use
  Company Number: DE-BRISTOL-MYERS SQUIBB COMPANY-21332085

PATIENT
  Age: 28 Day
  Sex: Male
  Weight: 4 kg

DRUGS (6)
  1. L-THYROXINE [Concomitant]
     Active Substance: LEVOTHYROXINE
  2. INSULIN [Suspect]
     Active Substance: INSULIN NOS
  3. FOLSAURE [Concomitant]
     Active Substance: FOLIC ACID
     Dates: start: 20130106, end: 20131002
  4. METFORMIN HCL [Suspect]
     Active Substance: METFORMIN HYDROCHLORIDE
     Route: 064
     Dates: start: 20130106, end: 20130226
  5. DOXYCYCLINE. [Concomitant]
     Active Substance: DOXYCYCLINE
     Dates: start: 20130204, end: 20130212
  6. PROTAPHANE [Concomitant]
     Active Substance: INSULIN HUMAN
     Dates: start: 20130226, end: 20131002

REACTIONS (2)
  - Renal aplasia [Not Recovered/Not Resolved]
  - Foetal exposure during pregnancy [Recovered/Resolved]
